FAERS Safety Report 17358311 (Version 1)
Quarter: 2020Q1

REPORT INFORMATION
  Report Type: Spontaneous
  Country: CA (occurrence: CA)
  Receive Date: 20200201
  Receipt Date: 20200201
  Transmission Date: 20200409
  Serious: Yes (Other)
  Sender: FDA-Public Use
  Company Number: CA-009507513-2001CAN010038

PATIENT

DRUGS (1)
  1. COZAAR [Suspect]
     Active Substance: LOSARTAN POTASSIUM
     Dosage: UNKNOWN
     Route: 048

REACTIONS (4)
  - Blood pressure increased [Unknown]
  - Erosive oesophagitis [Unknown]
  - Suspected product contamination [Unknown]
  - Blood pressure inadequately controlled [Unknown]
